FAERS Safety Report 5601203-0 (Version None)
Quarter: 2008Q1

REPORT INFORMATION
  Report Type: 
  Country: None (occurrence: None)
  Receive Date: 20080118
  Receipt Date: 20080103
  Transmission Date: 20080703
  Serious: Yes (Hospitalization)
  Sender: FDA-Public Use
  Company Number: 2008EU000037

PATIENT
  Age: 45 Year
  Sex: Female

DRUGS (3)
  1. PROGRAF [Suspect]
     Indication: LIVER TRANSPLANT
     Dosage: ORAL
     Route: 048
     Dates: start: 20060101
  2. PREDNISONE [Concomitant]
  3. MYCOPHENOLATE MOFETIL [Concomitant]

REACTIONS (6)
  - AGGRESSION [None]
  - AGITATION [None]
  - DYSARTHRIA [None]
  - HALLUCINATION [None]
  - HALLUCINATIONS, MIXED [None]
  - INCONTINENCE [None]
